FAERS Safety Report 6985356-8 (Version None)
Quarter: 2010Q3

REPORT INFORMATION
  Report Type: 
  Country: None (occurrence: None)
  Receive Date: 20100915
  Receipt Date: 20100907
  Transmission Date: 20110219
  Serious: No
  Sender: FDA-Public Use
  Company Number: US-PFIZER INC-2010113433

PATIENT

DRUGS (2)
  1. PENICILLIN G PROCAINE [Suspect]
  2. NEOSPORIN /USA/ [Suspect]

REACTIONS (2)
  - DRUG HYPERSENSITIVITY [None]
  - PIGMENTATION DISORDER [None]
